FAERS Safety Report 8377729-6 (Version None)
Quarter: 2012Q2

REPORT INFORMATION
  Report Type: 
  Country: None (occurrence: None)
  Receive Date: 20120522
  Receipt Date: 20120511
  Transmission Date: 20120825
  Serious: Yes (Hospitalization)
  Sender: FDA-Public Use
  Company Number: FR-VIIV HEALTHCARE LIMITED-B0800684A

PATIENT
  Sex: Female

DRUGS (6)
  1. RIFADIN [Concomitant]
     Route: 065
     Dates: start: 20111110
  2. PYRAZINAMIDE [Suspect]
     Indication: PRODUCT USED FOR UNKNOWN INDICATION
     Dosage: 1000MG PER DAY
     Route: 048
     Dates: start: 20111110, end: 20120107
  3. MYAMBUTOL [Suspect]
     Indication: PRODUCT USED FOR UNKNOWN INDICATION
     Dosage: 800MG PER DAY
     Route: 048
     Dates: start: 20111110, end: 20120107
  4. KALETRA [Suspect]
     Indication: HIV INFECTION
     Route: 048
     Dates: start: 20111110, end: 20120110
  5. RIMIFON [Concomitant]
     Route: 065
     Dates: start: 20111110
  6. COMBIVIR [Suspect]
     Indication: HIV INFECTION
     Dosage: 2UNIT PER DAY
     Route: 048
     Dates: start: 20111110, end: 20120110

REACTIONS (4)
  - CYTOLYTIC HEPATITIS [None]
  - DIARRHOEA [None]
  - MATERNAL EXPOSURE DURING PREGNANCY [None]
  - HYPERURICAEMIA [None]
